FAERS Safety Report 12910731 (Version 3)
Quarter: 2017Q2

REPORT INFORMATION
  Report Type: Spontaneous
  Country: US (occurrence: US)
  Receive Date: 20161104
  Receipt Date: 20170412
  Transmission Date: 20170830
  Serious: Yes (Death, Hospitalization)
  Sender: FDA-Public Use
  Company Number: US-JNJFOC-20161005435

PATIENT
  Age: 79 Year
  Sex: Female

DRUGS (3)
  1. XARELTO [Suspect]
     Active Substance: RIVAROXABAN
     Indication: DEEP VEIN THROMBOSIS
     Dosage: 10,15 AND 20 MG
     Route: 048
     Dates: start: 20131010, end: 20131024
  2. XARELTO [Suspect]
     Active Substance: RIVAROXABAN
     Indication: DEEP VEIN THROMBOSIS
     Route: 048
  3. XARELTO [Suspect]
     Active Substance: RIVAROXABAN
     Indication: DEEP VEIN THROMBOSIS
     Route: 048
     Dates: start: 201310, end: 20131107

REACTIONS (4)
  - Epistaxis [Recovering/Resolving]
  - Gastrointestinal haemorrhage [Recovered/Resolved]
  - Internal haemorrhage [Fatal]
  - Coagulopathy [Recovering/Resolving]

NARRATIVE: CASE EVENT DATE: 20131024
